FAERS Safety Report 6601720-0 (Version None)
Quarter: 2010Q1

REPORT INFORMATION
  Report Type: 
  Country: None (occurrence: None)
  Receive Date: 20100225
  Receipt Date: 20100217
  Transmission Date: 20100710
  Serious: Yes (Other)
  Sender: FDA-Public Use
  Company Number: AU-BAYER-201016128GPV

PATIENT
  Age: 36 Year
  Sex: Female

DRUGS (1)
  1. MIRENA [Suspect]
     Indication: MENORRHAGIA
     Route: 015
     Dates: start: 20091106, end: 20091218

REACTIONS (3)
  - DEVICE EXPULSION [None]
  - MYOCARDIAL INFARCTION [None]
  - VAGINAL HAEMORRHAGE [None]
